FAERS Safety Report 16073728 (Version 1)
Quarter: 2019Q1

REPORT INFORMATION
  Report Type: Spontaneous
  Country: US (occurrence: US)
  Receive Date: 20190314
  Receipt Date: 20190314
  Transmission Date: 20190418
  Serious: No
  Sender: FDA-Public Use
  Company Number: US-US WORLDMEDS, LLC-USW201812-001887

PATIENT
  Sex: Female

DRUGS (2)
  1. LUCEMYRA [Suspect]
     Active Substance: LOFEXIDINE
  2. LUCEMYRA [Suspect]
     Active Substance: LOFEXIDINE

REACTIONS (8)
  - Paraesthesia [Unknown]
  - Eye swelling [Unknown]
  - Peripheral swelling [Unknown]
  - Conjunctivitis [Unknown]
  - Influenza like illness [Recovered/Resolved]
  - Chills [Unknown]
  - Lymphadenopathy [Unknown]
  - Swollen tongue [Unknown]
